FAERS Safety Report 17762092 (Version 3)
Quarter: 2020Q3

REPORT INFORMATION
  Report Type: Spontaneous
  Country: GR (occurrence: GR)
  Receive Date: 20200508
  Receipt Date: 20200731
  Transmission Date: 20201102
  Serious: Yes (Hospitalization)
  Sender: FDA-Public Use
  Company Number: NVSC2020GR110694

PATIENT
  Sex: Female
  Weight: 60 kg

DRUGS (54)
  1. FILGRASTIM [Suspect]
     Active Substance: FILGRASTIM
     Indication: LEUKOPENIA
     Dosage: UNK
     Route: 058
     Dates: start: 20190523, end: 20200117
  2. FILGRASTIM [Suspect]
     Active Substance: FILGRASTIM
     Dosage: UNK
     Route: 058
     Dates: start: 20200117
  3. MEROPENEM. [Suspect]
     Active Substance: MEROPENEM
     Indication: NON-HODGKIN^S LYMPHOMA
     Dosage: 2 G (1 CYCLE 2GX3)
     Route: 042
     Dates: start: 20200103, end: 20200113
  4. CUBICIN [Suspect]
     Active Substance: DAPTOMYCIN
     Indication: NON-HODGKIN^S LYMPHOMA
     Dosage: 350 MG, CYCLIC (1 CYCLE)
     Route: 042
     Dates: start: 20200102, end: 20200113
  5. ESHAP [Suspect]
     Active Substance: CISPLATIN\CYTARABINE\ETOPOSIDE\METHYLPREDNISOLONE (ESHAP)
     Indication: DIFFUSE LARGE B-CELL LYMPHOMA
     Dosage: 2 CYCLES
     Route: 065
     Dates: start: 20191113, end: 20191223
  6. ALDACTONE [Suspect]
     Active Substance: SPIRONOLACTONE
     Dosage: UNK
     Route: 042
  7. VALTREX [Suspect]
     Active Substance: VALACYCLOVIR HYDROCHLORIDE
     Dosage: 500 MG
     Route: 048
     Dates: start: 20200108, end: 20200113
  8. VALTREX [Suspect]
     Active Substance: VALACYCLOVIR HYDROCHLORIDE
     Dosage: UNK
     Route: 042
  9. OMEPRAZOLE. [Suspect]
     Active Substance: OMEPRAZOLE
     Indication: NON-HODGKIN^S LYMPHOMA
     Dosage: UNK
     Route: 042
     Dates: start: 20191223
  10. RITUXIMAB. [Suspect]
     Active Substance: RITUXIMAB
     Dosage: 2 OT, CYCLIC (2 CYCLES)
     Route: 042
     Dates: start: 20191113, end: 20191223
  11. EPOETIN ALFA [Suspect]
     Active Substance: ERYTHROPOIETIN
     Indication: ANAEMIA
     Dosage: 1 CYCLE
     Route: 058
     Dates: start: 20190523, end: 20200124
  12. ALDACTONE [Suspect]
     Active Substance: SPIRONOLACTONE
     Indication: NON-HODGKIN^S LYMPHOMA
     Dosage: 1 CYCLE
     Route: 048
     Dates: start: 20200105, end: 20200112
  13. NORVASC [Suspect]
     Active Substance: AMLODIPINE BESYLATE
     Dosage: UNK
     Route: 058
  14. ARACYTINE [Suspect]
     Active Substance: CYTARABINE
     Dosage: UNK
     Route: 058
  15. HUMAN ALBUMIN [Suspect]
     Active Substance: ALBUMIN HUMAN
     Dosage: 100 MG, CYCLIC (50 MG X2)
     Route: 042
     Dates: start: 20200110
  16. HUMAN ALBUMIN [Suspect]
     Active Substance: ALBUMIN HUMAN
     Dosage: 1 CYLCE 50MG X2
     Route: 042
     Dates: start: 20200110, end: 20200113
  17. RITUXIMAB. [Suspect]
     Active Substance: RITUXIMAB
     Dosage: 8 OT, CYCLIC
     Route: 042
     Dates: start: 20190513, end: 20191013
  18. MABTHERA [Suspect]
     Active Substance: RITUXIMAB
     Indication: NON-HODGKIN^S LYMPHOMA
     Dosage: 1400 MG, CYCLIC (6 CYCLES)
     Route: 058
     Dates: start: 20190625, end: 20191009
  19. MABTHERA [Suspect]
     Active Substance: RITUXIMAB
     Dosage: 1400 MG
     Route: 058
     Dates: start: 20191113, end: 20191210
  20. MABTHERA [Suspect]
     Active Substance: RITUXIMAB
     Dosage: 650 MG, CYCLIC (1 CYCLE)
     Route: 042
     Dates: start: 20191222, end: 20200113
  21. LOSECA [Suspect]
     Active Substance: OMEPRAZOLE
     Indication: NON-HODGKIN^S LYMPHOMA
     Dosage: 1 CYCLES TWICE
     Route: 042
     Dates: start: 20191223, end: 20200113
  22. CHLORPHENAMINE [Suspect]
     Active Substance: CHLORPHENIRAMINE MALEATE
     Indication: NON-HODGKIN^S LYMPHOMA
     Dosage: 1 CYCLE
     Route: 042
     Dates: start: 20200110, end: 20200112
  23. HYALURONIDASE, HUMAN RECOMBINANT [Suspect]
     Active Substance: HYALURONIDASE (HUMAN RECOMBINANT)
     Indication: DIFFUSE LARGE B-CELL LYMPHOMA
     Dosage: 3 CYCLES
     Route: 058
     Dates: start: 20190513, end: 20190625
  24. HUMAN ALBUMIN [Suspect]
     Active Substance: ALBUMIN HUMAN
     Indication: NON-HODGKIN^S LYMPHOMA
     Dosage: 100 MG, CYCLIC (50 MG X2)
     Route: 042
     Dates: start: 20200110
  25. LASIX [Suspect]
     Active Substance: FUROSEMIDE
     Indication: NON-HODGKIN^S LYMPHOMA
     Dosage: 1 CYCLE
     Route: 048
     Dates: start: 20200110, end: 20200112
  26. LASIX [Suspect]
     Active Substance: FUROSEMIDE
     Dosage: UNK
     Route: 042
     Dates: start: 20200113
  27. RITUXIMAB. [Suspect]
     Active Substance: RITUXIMAB
     Dosage: 2 OT, CYCLIC
     Route: 042
     Dates: start: 20191223
  28. EPOETIN ALFA [Suspect]
     Active Substance: ERYTHROPOIETIN
     Dosage: UNK
     Route: 058
     Dates: start: 20200124
  29. MABTHERA [Suspect]
     Active Substance: RITUXIMAB
     Dosage: 650 MG, CYCLIC
     Route: 042
     Dates: start: 20200113
  30. VALTREX [Suspect]
     Active Substance: VALACYCLOVIR HYDROCHLORIDE
     Indication: NON-HODGKIN^S LYMPHOMA
     Dosage: UNK
     Route: 058
  31. HYALURONIDASE, HUMAN RECOMBINANT [Suspect]
     Active Substance: HYALURONIDASE (HUMAN RECOMBINANT)
     Dosage: UNK
     Route: 058
     Dates: start: 20190625
  32. CISPLATIN. [Suspect]
     Active Substance: CISPLATIN
     Dosage: 38 MG, CYCLIC (2 CYCLES)
     Route: 042
     Dates: start: 20200113
  33. DOXORUBICIN [Suspect]
     Active Substance: DOXORUBICIN
     Indication: NON-HODGKIN^S LYMPHOMA
     Dosage: 75 MG (8 CYCLES)
     Route: 042
     Dates: start: 20190513, end: 20191009
  34. DOXORUBICIN [Suspect]
     Active Substance: DOXORUBICIN
     Dosage: UNK
     Route: 058
  35. CHOP [Suspect]
     Active Substance: CYCLOPHOSPHAMIDE\DOXORUBICIN\PREDNISONE\VINCRISTINE
     Dosage: UNK
     Route: 065
     Dates: start: 20191013
  36. MABTHERA [Suspect]
     Active Substance: RITUXIMAB
     Dosage: 1 OT, CYCLIC
     Route: 058
     Dates: start: 20191113, end: 20191210
  37. VALTREX [Suspect]
     Active Substance: VALACYCLOVIR HYDROCHLORIDE
     Dosage: 500 MG
     Route: 048
     Dates: start: 20190513, end: 20190516
  38. CUBICIN [Suspect]
     Active Substance: DAPTOMYCIN
     Dosage: 350 MG, CYCLIC
     Route: 042
     Dates: start: 20200113
  39. RITUXIMAB. [Suspect]
     Active Substance: RITUXIMAB
     Indication: DIFFUSE LARGE B-CELL LYMPHOMA
     Dosage: UNK
     Route: 042
     Dates: start: 20190513, end: 20191013
  40. ESHAP [Suspect]
     Active Substance: CISPLATIN\CYTARABINE\ETOPOSIDE\METHYLPREDNISOLONE (ESHAP)
     Dosage: UNK
     Route: 065
     Dates: start: 20191223
  41. CHLORPHENAMINE [Suspect]
     Active Substance: CHLORPHENIRAMINE MALEATE
     Dosage: UNK
     Route: 042
  42. ARACYTINE [Suspect]
     Active Substance: CYTARABINE
     Indication: NON-HODGKIN^S LYMPHOMA
     Dosage: 3 G
     Route: 042
     Dates: start: 20191123, end: 20200113
  43. CISPLATIN. [Suspect]
     Active Substance: CISPLATIN
     Indication: NON-HODGKIN^S LYMPHOMA
     Dosage: UNK
     Route: 058
  44. CISPLATIN. [Suspect]
     Active Substance: CISPLATIN
     Dosage: 38 MG, CYCLIC (2 CYCLES)
     Route: 042
     Dates: start: 20191119, end: 20200113
  45. OMEPRAZOLE. [Suspect]
     Active Substance: OMEPRAZOLE
     Dosage: UNK
     Route: 042
     Dates: start: 20200113
  46. MEROPENEM. [Suspect]
     Active Substance: MEROPENEM
     Dosage: 2 G
     Route: 042
     Dates: start: 20200113
  47. CHOP [Suspect]
     Active Substance: CYCLOPHOSPHAMIDE\DOXORUBICIN\PREDNISONE\VINCRISTINE
     Indication: DIFFUSE LARGE B-CELL LYMPHOMA
     Dosage: 8 CYCLES
     Route: 065
     Dates: start: 20190513, end: 20191013
  48. VEPESID [Suspect]
     Active Substance: ETOPOSIDE
     Indication: NON-HODGKIN^S LYMPHOMA
     Dosage: UNK
     Route: 058
  49. CANCIDAS [Suspect]
     Active Substance: CASPOFUNGIN ACETATE
     Indication: NON-HODGKIN^S LYMPHOMA
     Dosage: 50 MG
     Route: 042
     Dates: start: 20200105, end: 20200113
  50. CANCIDAS [Suspect]
     Active Substance: CASPOFUNGIN ACETATE
     Dosage: 50 MG
     Route: 042
     Dates: start: 20200113
  51. VEPESID [Suspect]
     Active Substance: ETOPOSIDE
     Dosage: 90 MG, CYCLIC (2 CYCLE)
     Route: 042
     Dates: start: 20191119, end: 20200113
  52. VEPESID [Suspect]
     Active Substance: ETOPOSIDE
     Dosage: UNK
     Route: 058
  53. NORVASC [Suspect]
     Active Substance: AMLODIPINE BESYLATE
     Indication: HYPERTENSION
     Dosage: 1 CYCLE
     Route: 048
     Dates: start: 20190515, end: 20190516
  54. LOSECA [Suspect]
     Active Substance: OMEPRAZOLE
     Dosage: UNK
     Route: 042
     Dates: start: 20200113

REACTIONS (2)
  - Diffuse large B-cell lymphoma refractory [Unknown]
  - Disease progression [Unknown]
